FAERS Safety Report 7127901-8 (Version None)
Quarter: 2010Q4

REPORT INFORMATION
  Report Type: 
  Country: None (occurrence: None)
  Receive Date: 20101130
  Receipt Date: 20101119
  Transmission Date: 20110411
  Serious: Yes (Hospitalization)
  Sender: FDA-Public Use
  Company Number: IT-JNJFOC-20091205693

PATIENT
  Age: 40 Year
  Sex: Male

DRUGS (4)
  1. REMICADE [Suspect]
     Indication: PSORIATIC ARTHROPATHY
     Route: 042
  2. REMICADE [Suspect]
     Route: 042
  3. METHOTREXATE [Suspect]
     Indication: PSORIATIC ARTHROPATHY
  4. METHOTREXATE [Suspect]

REACTIONS (3)
  - AUTOMATIC BLADDER [None]
  - HERPES ZOSTER [None]
  - PSORIASIS [None]
